FAERS Safety Report 20724998 (Version 1)
Quarter: 2022Q2

REPORT INFORMATION
  Report Type: Spontaneous
  Country: US (occurrence: None)
  Receive Date: 20220418
  Receipt Date: 20220418
  Transmission Date: 20220721
  Serious: Yes (Disabling, Congenital Anomaly)
  Sender: FDA-Public Use
  Company Number: None

PATIENT
  Age: 33 Year
  Sex: Female
  Weight: 94.5 kg

DRUGS (1)
  1. DICLEGIS [Suspect]
     Active Substance: DOXYLAMINE SUCCINATE\PYRIDOXINE HYDROCHLORIDE
     Indication: Vomiting
     Route: 048

REACTIONS (8)
  - Maternal exposure during pregnancy [None]
  - Foetal exposure during pregnancy [None]
  - Congenital anomaly [None]
  - Speech disorder [None]
  - Motor dysfunction [None]
  - Visual impairment [None]
  - Cognitive disorder [None]
  - Congenital cardiovascular anomaly [None]

NARRATIVE: CASE EVENT DATE: 20170115
